FAERS Safety Report 18652518 (Version 2)
Quarter: 2021Q1

REPORT INFORMATION
  Report Type: Spontaneous
  Country: US (occurrence: US)
  Receive Date: 20201222
  Receipt Date: 20210317
  Transmission Date: 20210419
  Serious: Yes (Other)
  Sender: FDA-Public Use
  Company Number: US-TOLMAR, INC.-20US024433

PATIENT
  Age: 67 Year
  Sex: Female
  Weight: 81.63 kg

DRUGS (1)
  1. AZELAIC ACID. [Suspect]
     Active Substance: AZELAIC ACID
     Indication: ROSACEA
     Dosage: UNK UNK, QD
     Route: 065
     Dates: start: 20200918, end: 20200919

REACTIONS (4)
  - Cellulitis [Recovered/Resolved]
  - Discomfort [Unknown]
  - Pain [Unknown]
  - Application site pain [Unknown]

NARRATIVE: CASE EVENT DATE: 20200919
